FAERS Safety Report 13113501 (Version 3)
Quarter: 2017Q1

REPORT INFORMATION
  Report Type: Spontaneous
  Country: US (occurrence: US)
  Receive Date: 20170113
  Receipt Date: 20170331
  Transmission Date: 20170428
  Serious: No
  Sender: FDA-Public Use
  Company Number: US-ASTRAZENECA-2017SE01645

PATIENT
  Age: 84 Year
  Sex: Female
  Weight: 64.9 kg

DRUGS (10)
  1. ATORVASTATIN [Concomitant]
     Active Substance: ATORVASTATIN
     Indication: BLOOD CHOLESTEROL
  2. SYMBICORT [Suspect]
     Active Substance: BUDESONIDE\FORMOTEROL FUMARATE DIHYDRATE
     Indication: EMPHYSEMA
     Dosage: DOSE:160 MCG /4.5 MCG. 2 PUFFS, FREQUENCY:TWO TIMES A DAY
     Route: 055
     Dates: start: 2015
  3. OCUVITE [Concomitant]
     Active Substance: VITAMINS
  4. BIOTIN [Concomitant]
     Active Substance: BIOTIN
  5. SYMBICORT [Suspect]
     Active Substance: BUDESONIDE\FORMOTEROL FUMARATE DIHYDRATE
     Indication: LUNG NEOPLASM MALIGNANT
     Dosage: DOSE:160 MCG /4.5 MCG. 2 PUFFS, FREQUENCY:TWO TIMES A DAY
     Route: 055
     Dates: start: 20161216
  6. SYMBICORT [Suspect]
     Active Substance: BUDESONIDE\FORMOTEROL FUMARATE DIHYDRATE
     Indication: EMPHYSEMA
     Dosage: DOSE:160 MCG/4.5 MCG. 2 PUFFS, FREQUENCY:TWO TIMES A DAY
     Route: 055
     Dates: start: 20161214
  7. SYMBICORT [Suspect]
     Active Substance: BUDESONIDE\FORMOTEROL FUMARATE DIHYDRATE
     Indication: EMPHYSEMA
     Dosage: DOSE:160 MCG /4.5 MCG. 2 PUFFS, FREQUENCY:TWO TIMES A DAY
     Route: 055
     Dates: start: 20161216
  8. SYMBICORT [Suspect]
     Active Substance: BUDESONIDE\FORMOTEROL FUMARATE DIHYDRATE
     Indication: LUNG NEOPLASM MALIGNANT
     Dosage: DOSE:160 MCG /4.5 MCG. 2 PUFFS, FREQUENCY:TWO TIMES A DAY
     Route: 055
     Dates: start: 2015
  9. SYMBICORT [Suspect]
     Active Substance: BUDESONIDE\FORMOTEROL FUMARATE DIHYDRATE
     Indication: LUNG NEOPLASM MALIGNANT
     Dosage: DOSE:160 MCG/4.5 MCG. 2 PUFFS, FREQUENCY:TWO TIMES A DAY
     Route: 055
     Dates: start: 20161214
  10. VITAMINS NOS [Concomitant]
     Active Substance: VITAMINS

REACTIONS (9)
  - Drug dose omission [Unknown]
  - Intentional product misuse [Unknown]
  - Visual acuity reduced [Unknown]
  - Product use issue [Unknown]
  - Device malfunction [Unknown]
  - Underdose [Unknown]
  - Memory impairment [Unknown]
  - Off label use of device [Unknown]
  - Off label use [Unknown]

NARRATIVE: CASE EVENT DATE: 2015
